FAERS Safety Report 25103216 (Version 2)
Quarter: 2025Q1

REPORT INFORMATION
  Report Type: Report from Study
  Country: RO (occurrence: RO)
  Receive Date: 20250321
  Receipt Date: 20250325
  Transmission Date: 20250409
  Serious: Yes (Death, Other)
  Sender: NOVARTIS
  Company Number: RO-002147023-NVSC2025RO045722

PATIENT
  Age: 69 Year
  Sex: Female

DRUGS (2)
  1. KISQALI [Suspect]
     Active Substance: RIBOCICLIB
     Indication: Breast cancer female
     Dosage: 2 DOSAGE FORM, QD
     Route: 065
     Dates: start: 202409
  2. KISQALI [Suspect]
     Active Substance: RIBOCICLIB
     Indication: Metastases to bone

REACTIONS (2)
  - Jaundice cholestatic [Fatal]
  - Hepatic failure [Fatal]

NARRATIVE: CASE EVENT DATE: 20241101
